FAERS Safety Report 26127167 (Version 1)
Quarter: 2025Q4

REPORT INFORMATION
  Report Type: Spontaneous
  Country: US (occurrence: US)
  Receive Date: 20251205
  Receipt Date: 20251205
  Transmission Date: 20260117
  Serious: Yes (Other)
  Sender: Alora Pharma
  Company Number: US-AVION PHARMACEUTICALS-2025ALO02632

PATIENT
  Age: 68 Year
  Sex: Male
  Weight: 65.76 kg

DRUGS (12)
  1. CARBIDOPA LEVODOPA [Suspect]
     Active Substance: CARBIDOPA\LEVODOPA
     Indication: Parkinson^s disease
     Dosage: 36.25 MG/145 MG EXTENDED RELEASE; CAPSULE; 3X/DAY
     Route: 048
  2. CARBIDOPA LEVODOPA [Suspect]
     Active Substance: CARBIDOPA\LEVODOPA
     Dosage: 36.25 MG/145 MG EXTENDED RELEASE; 5 X/DAY
     Route: 048
  3. CARBIDOPA LEVODOPA [Suspect]
     Active Substance: CARBIDOPA\LEVODOPA
     Dosage: 36.25 MG/145 MG EXTENDED RELEASE; CAPSULE; 3X/DAY
     Route: 048
  4. CARBIDOPA LEVODOPA [Suspect]
     Active Substance: CARBIDOPA\LEVODOPA
     Indication: Parkinson^s disease
     Dosage: 25 MG/100 MG IMMEDIATE RELEASE; TABLET;  3X/DAY
     Route: 065
  5. CARBIDOPA LEVODOPA [Suspect]
     Active Substance: CARBIDOPA\LEVODOPA
     Dosage: UNK 25 MG/100 MG IMMEDIATE RELEASE; TABLET; RESTARTED, 3X/DAY
     Route: 065
  6. HERBALS [Suspect]
     Active Substance: HERBALS
     Indication: Parkinson^s disease
     Dosage: 350 MG, 2X/DAY
     Route: 065
  7. HERBALS [Suspect]
     Active Substance: HERBALS
     Dosage: 350 MG, 3X/DAY
     Route: 065
  8. AMLODIPINE [Concomitant]
     Active Substance: AMLODIPINE BESYLATE
     Dosage: 5 MG, 1X/DAY
     Route: 065
  9. SERTRALINE [Concomitant]
     Active Substance: SERTRALINE HYDROCHLORIDE
     Dosage: 50 MG, 1X/DAY
     Route: 065
  10. ACETAMINOPHEN [Concomitant]
     Active Substance: ACETAMINOPHEN
     Indication: Pain
     Dosage: 325 MG; EVERY 6 HOURS, AS NEEDED
     Route: 065
  11. SENNOSIDES [Concomitant]
     Active Substance: SENNOSIDES
     Indication: Constipation
     Dosage: 8.6 MG, 1 TABLET DAILY AS NEEDED
     Route: 065
  12. ZOLPIDEM [Concomitant]
     Active Substance: ZOLPIDEM TARTRATE
     Indication: Sleep disorder
     Dosage: 5 MG; AT BEDTIME AS NEEDED
     Route: 065

REACTIONS (6)
  - Dopamine dysregulation syndrome [Recovered/Resolved]
  - Insomnia [Recovered/Resolved]
  - Impulse-control disorder [Recovered/Resolved]
  - Hallucination, visual [Recovered/Resolved]
  - Dyskinesia [Recovered/Resolved]
  - Intentional product misuse [Recovered/Resolved]
